FAERS Safety Report 17514825 (Version 1)
Quarter: 2020Q1

REPORT INFORMATION
  Report Type: Spontaneous
  Country: US (occurrence: US)
  Receive Date: 20200309
  Receipt Date: 20200309
  Transmission Date: 20200409
  Serious: Yes (Hospitalization)
  Sender: FDA-Public Use
  Company Number: US-TEVA-2020-US-1196926

PATIENT
  Age: 44 Year
  Sex: Female

DRUGS (1)
  1. ETHINYLESTRADIOL/NORGESTIMATE [Suspect]
     Active Substance: ETHINYL ESTRADIOL\NORGESTIMATE
     Indication: ORAL CONTRACEPTION
     Route: 048

REACTIONS (1)
  - Epiploic appendagitis [Recovered/Resolved]
